FAERS Safety Report 5105027-2 (Version None)
Quarter: 2006Q3

REPORT INFORMATION
  Report Type: 
  Country: None (occurrence: None)
  Receive Date: 20060911
  Receipt Date: 20060829
  Transmission Date: 20061208
  Serious: Yes (Other)
  Sender: FDA-Public Use
  Company Number: 2006098297

PATIENT
  Age: 83 Year
  Sex: Female

DRUGS (6)
  1. TIKOSYN [Suspect]
     Indication: ATRIAL FIBRILLATION
     Dosage: 500 MCG (250 MCG, 2 IN 1 D)
     Dates: start: 20060801
  2. HYDROCORTISONE ACETATE [Suspect]
     Indication: DRUG ERUPTION
     Dosage: TOPICAL
     Route: 061
  3. LEVOXYL [Concomitant]
  4. RANITIDINE [Concomitant]
  5. COUMADIN [Concomitant]
  6. VIVELLE-DOT [Concomitant]

REACTIONS (15)
  - ASTHENIA [None]
  - ATRIAL FIBRILLATION [None]
  - CELLULITIS [None]
  - CONTUSION [None]
  - DEPRESSION [None]
  - DRUG INEFFECTIVE [None]
  - ERYTHEMA [None]
  - FEELING HOT [None]
  - HEADACHE [None]
  - INSOMNIA [None]
  - PERSONALITY CHANGE [None]
  - PRURITUS [None]
  - RASH [None]
  - RHABDOMYOLYSIS [None]
  - SWELLING [None]
